FAERS Safety Report 10008446 (Version 1)
Quarter: 2014Q1

REPORT INFORMATION
  Report Type: Spontaneous
  Country: US (occurrence: None)
  Receive Date: 20140228
  Receipt Date: 20140228
  Transmission Date: 20141002
  Serious: Yes (Other)
  Sender: FDA-Public Use
  Company Number: 225221

PATIENT
  Age: 51 Year
  Sex: Male

DRUGS (1)
  1. PICATO [Suspect]
     Indication: ACTINIC KERATOSIS
     Dosage: 1 IN 1 D, DERMAL
     Dates: start: 20131224

REACTIONS (4)
  - Application site swelling [None]
  - Application site pain [None]
  - Application site exfoliation [None]
  - Drug administered at inappropriate site [None]
